FAERS Safety Report 16880056 (Version 8)
Quarter: 2022Q1

REPORT INFORMATION
  Report Type: Spontaneous
  Country: IT (occurrence: IT)
  Receive Date: 20191003
  Receipt Date: 20220314
  Transmission Date: 20220423
  Serious: Yes (Life-Threatening, Hospitalization, Other)
  Sender: FDA-Public Use
  Company Number: None

PATIENT
  Age: 55 Year
  Sex: Female
  Weight: 60 kg

DRUGS (17)
  1. LURASIDONE [Interacting]
     Active Substance: LURASIDONE
     Indication: Depression
     Route: 048
     Dates: start: 20190301, end: 20190722
  2. OLMESARTAN [Interacting]
     Active Substance: OLMESARTAN
     Indication: Product used for unknown indication
  3. AMLODIPINE BESYLATE\OLMESARTAN MEDOXOMIL [Interacting]
     Active Substance: AMLODIPINE BESYLATE\OLMESARTAN MEDOXOMIL
     Indication: Product used for unknown indication
     Route: 065
  4. PANTOPRAZOLE [Interacting]
     Active Substance: PANTOPRAZOLE
     Indication: Product used for unknown indication
     Route: 065
  5. ROSUVASTATIN CALCIUM [Interacting]
     Active Substance: ROSUVASTATIN CALCIUM
     Indication: Product used for unknown indication
     Dates: end: 20190729
  6. SERTRALINE [Interacting]
     Active Substance: SERTRALINE HYDROCHLORIDE
     Indication: Depression
     Route: 048
  7. TRAZODONE HYDROCHLORIDE [Interacting]
     Active Substance: TRAZODONE HYDROCHLORIDE
     Indication: Depression
     Route: 048
     Dates: start: 20190728, end: 20190729
  8. CEFTRIAXONE [Interacting]
     Active Substance: CEFTRIAXONE
     Indication: Lung consolidation
  9. GANCICLOVIR [Interacting]
     Active Substance: GANCICLOVIR
     Indication: Encephalitis viral
  10. LEVOFLOXACIN [Interacting]
     Active Substance: LEVOFLOXACIN
     Indication: Roseolovirus test positive
  11. FENOFIBRATE [Interacting]
     Active Substance: FENOFIBRATE
     Indication: Product used for unknown indication
     Route: 065
     Dates: end: 20190729
  12. DELORAZEPAM [Interacting]
     Active Substance: DELORAZEPAM
     Indication: Product used for unknown indication
     Route: 065
  13. BETAHISTINE [Interacting]
     Active Substance: BETAHISTINE
     Indication: Product used for unknown indication
     Route: 065
  14. POLYETHYLENE GLYCOLS [Interacting]
     Active Substance: POLYETHYLENE GLYCOLS
     Indication: Product used for unknown indication
  15. BIPERIDEN [Interacting]
     Active Substance: BIPERIDEN
     Indication: Product used for unknown indication
     Route: 005
  16. ADEMETIONINE [Interacting]
     Active Substance: ADEMETIONINE
     Indication: Depression
     Route: 065
     Dates: end: 20190729
  17. CHLORAL HYDRATE DERIVATIVE [Concomitant]
     Indication: Product used for unknown indication

REACTIONS (22)
  - Drug interaction [Unknown]
  - Pyrexia [Recovered/Resolved with Sequelae]
  - Nystagmus [Recovered/Resolved with Sequelae]
  - Confusional state [Recovered/Resolved]
  - Rhabdomyolysis [Recovered/Resolved]
  - Confabulation [Recovered/Resolved with Sequelae]
  - Dyskinesia [Recovered/Resolved with Sequelae]
  - Myelosuppression [Recovered/Resolved]
  - Renal failure [Recovered/Resolved]
  - Clonus [Recovered/Resolved]
  - Tachycardia [Recovered/Resolved]
  - Tachypnoea [Recovered/Resolved]
  - Agitation [Recovering/Resolving]
  - Mood altered [Recovering/Resolving]
  - Serotonin syndrome [Recovered/Resolved]
  - Hypokalaemia [Recovered/Resolved]
  - Blood creatine phosphokinase increased [Recovered/Resolved]
  - Blood creatinine increased [Recovered/Resolved]
  - Intentional product use issue [Unknown]
  - Contraindicated product administered [Unknown]
  - Movement disorder [Recovered/Resolved]
  - Hypomagnesaemia [Recovered/Resolved]

NARRATIVE: CASE EVENT DATE: 20190729
